FAERS Safety Report 6405360-8 (Version None)
Quarter: 2009Q4

REPORT INFORMATION
  Report Type: 
  Country: None (occurrence: None)
  Receive Date: 20091019
  Receipt Date: 20091008
  Transmission Date: 20100525
  Serious: Yes (Hospitalization)
  Sender: FDA-Public Use
  Company Number: ES-JNJFOC-20090706117

PATIENT
  Age: 37 Year
  Sex: Female
  Weight: 58 kg

DRUGS (8)
  1. REMICADE [Suspect]
     Dosage: THERAPY DURATION 4 YEARS, 2 MONTHS
     Dates: start: 20050301, end: 20090701
  2. REMICADE [Suspect]
     Indication: RHEUMATOID ARTHRITIS
     Dates: start: 20050301, end: 20090701
  3. METHOTREXATE [Concomitant]
  4. URBASON [Concomitant]
  5. ACFOL [Concomitant]
  6. AMOXICILLIN AND CLAVULANATE POTASSIUM [Concomitant]
  7. CLINDAMYCIN [Concomitant]
  8. CORTICOSTEROIDS [Concomitant]

REACTIONS (5)
  - ALLERGIC TRANSFUSION REACTION [None]
  - BONE MARROW FAILURE [None]
  - PANCYTOPENIA [None]
  - SEPTIC ARTHRITIS STAPHYLOCOCCAL [None]
  - SYNOVECTOMY [None]
